FAERS Safety Report 6407174-1 (Version None)
Quarter: 2009Q4

REPORT INFORMATION
  Report Type: 
  Country: None (occurrence: None)
  Receive Date: 20091020
  Receipt Date: 20090806
  Transmission Date: 20100525
  Serious: No
  Sender: FDA-Public Use
  Company Number: US-BAYER-200926266NA

PATIENT
  Age: 16 Year
  Sex: Female

DRUGS (1)
  1. YAZ [Suspect]
     Indication: CONTRACEPTION
     Dates: start: 20090701

REACTIONS (4)
  - BREAST DISCHARGE [None]
  - EMOTIONAL DISORDER [None]
  - MENSTRUATION DELAYED [None]
  - THINKING ABNORMAL [None]
